FAERS Safety Report 12844477 (Version 4)
Quarter: 2017Q1

REPORT INFORMATION
  Report Type: Spontaneous
  Country: CA (occurrence: CA)
  Receive Date: 20161013
  Receipt Date: 20170308
  Transmission Date: 20170428
  Serious: Yes (Hospitalization)
  Sender: FDA-Public Use
  Company Number: CA-GILEAD-2016-0238176

PATIENT
  Age: 52 Year
  Sex: Female
  Weight: 65 kg

DRUGS (3)
  1. AMBRISENTAN [Suspect]
     Active Substance: AMBRISENTAN
     Indication: PULMONARY ARTERIAL HYPERTENSION
     Dosage: 5 MG, UNK
     Route: 065
     Dates: start: 20121122
  2. AMBRISENTAN [Suspect]
     Active Substance: AMBRISENTAN
     Dosage: 10 MG, QD
     Route: 065
  3. AMBRISENTAN [Suspect]
     Active Substance: AMBRISENTAN
     Dosage: 5 MG, UNK
     Route: 065
     Dates: start: 20170218

REACTIONS (18)
  - Abdominal distension [Unknown]
  - Sinusitis [Unknown]
  - Cough [Recovering/Resolving]
  - Head discomfort [Recovering/Resolving]
  - Joint swelling [Unknown]
  - Vomiting [Recovered/Resolved]
  - Nausea [Recovered/Resolved]
  - Nasopharyngitis [Recovering/Resolving]
  - Vaginal haemorrhage [Unknown]
  - Diarrhoea [Unknown]
  - Pain in extremity [Recovered/Resolved]
  - Palpitations [Recovered/Resolved]
  - Malaise [Unknown]
  - Uterine leiomyoma [Unknown]
  - Headache [Recovered/Resolved]
  - Incorrect drug administration rate [Unknown]
  - Sputum discoloured [Recovering/Resolving]
  - Aphonia [Recovering/Resolving]
